FAERS Safety Report 17415669 (Version 1)
Quarter: 2020Q1

REPORT INFORMATION
  Report Type: Spontaneous
  Country: BR (occurrence: BR)
  Receive Date: 20200213
  Receipt Date: 20200213
  Transmission Date: 20200409
  Serious: Yes (Other)
  Sender: FDA-Public Use
  Company Number: BR-ABBVIE-20P-020-3268765-00

PATIENT
  Age: 39 Year
  Sex: Female

DRUGS (3)
  1. DEPAKENE [Suspect]
     Active Substance: VALPROIC ACID
     Indication: SEIZURE
     Dosage: DD: 20ML; 7,5 ML MORNING, 5 ML AFTERNOON AND 7,5 ML NIGHT
     Route: 048
  2. GARDENAL [Concomitant]
     Active Substance: PHENOBARBITAL
     Indication: PRODUCT USED FOR UNKNOWN INDICATION
     Dosage: STARTED AFTER RIVOTRIL
  3. RIVOTRIL [Concomitant]
     Active Substance: CLONAZEPAM
     Indication: SEIZURE
     Dosage: DD: 60 DROPS; STARTED BEFORE GARDENAL
     Route: 048

REACTIONS (7)
  - Seizure [Recovering/Resolving]
  - Blood insulin abnormal [Recovering/Resolving]
  - Off label use [Recovered/Resolved]
  - Hair texture abnormal [Unknown]
  - Weight increased [Unknown]
  - Blood glucose decreased [Unknown]
  - Product use issue [Recovered/Resolved]
